FAERS Safety Report 9311236 (Version 2)
Quarter: 2013Q2

REPORT INFORMATION
  Report Type: Report from Study
  Country: AU (occurrence: AU)
  Receive Date: 20130528
  Receipt Date: 20130603
  Transmission Date: 20140414
  Serious: Yes (Hospitalization)
  Sender: FDA-Public Use
  Company Number: AU-PFIZER INC-2013157142

PATIENT
  Age: 5 Year
  Sex: Female
  Weight: 12.4 kg

DRUGS (1)
  1. GENOTROPIN GOQUICK [Suspect]
     Dosage: 5 MG, WEEKLY
     Dates: start: 20100923

REACTIONS (1)
  - Papilloedema [Recovered/Resolved]
